FAERS Safety Report 10736521 (Version 1)
Quarter: 2015Q1

REPORT INFORMATION
  Report Type: Spontaneous
  Country: IT (occurrence: IT)
  Receive Date: 20150126
  Receipt Date: 20150126
  Transmission Date: 20150721
  Serious: Yes (Death, Hospitalization, Other)
  Sender: FDA-Public Use
  Company Number: IT-APOTEX-2015AP005451

PATIENT
  Age: 73 Year
  Sex: Female

DRUGS (4)
  1. CLOPIDOGREL [Suspect]
     Active Substance: CLOPIDOGREL BISULFATE
     Indication: MYOCARDIAL ISCHAEMIA
  2. ASPIRIN. [Concomitant]
     Active Substance: ASPIRIN
     Indication: MYOCARDIAL ISCHAEMIA
  3. CLOPIDOGREL [Suspect]
     Active Substance: CLOPIDOGREL BISULFATE
     Indication: ANTIPLATELET THERAPY
     Dosage: UNK
     Route: 065
  4. ASPIRIN. [Concomitant]
     Active Substance: ASPIRIN
     Indication: ANTIPLATELET THERAPY
     Dosage: UNK
     Route: 065

REACTIONS (8)
  - Hepatic ischaemia [Fatal]
  - Thrombotic thrombocytopenic purpura [Fatal]
  - Renal ischaemia [Fatal]
  - Aortic thrombosis [Fatal]
  - Haemolytic anaemia [Fatal]
  - Intestinal ischaemia [Fatal]
  - Visceral arterial ischaemia [Fatal]
  - Renal failure [Fatal]
